FAERS Safety Report 24828171 (Version 2)
Quarter: 2025Q2

REPORT INFORMATION
  Report Type: Spontaneous
  Country: US (occurrence: US)
  Receive Date: 20250109
  Receipt Date: 20250530
  Transmission Date: 20250717
  Serious: No
  Sender: ITALFARMACO SPA
  Company Number: US-ITALFARMACO SPA-2168732

PATIENT
  Age: 24 Year
  Sex: Male
  Weight: 70.31 kg

DRUGS (6)
  1. DUVYZAT [Suspect]
     Active Substance: GIVINOSTAT
     Indication: Duchenne muscular dystrophy
     Dates: start: 20241025
  2. DEFLAZACORT [Concomitant]
     Active Substance: DEFLAZACORT
  3. VITAMIN D3 [Concomitant]
     Active Substance: CHOLECALCIFEROL
  4. OMEGA-3 FATTY ACIDS [Concomitant]
     Active Substance: OMEGA-3 FATTY ACIDS
  5. EPLERENONE [Concomitant]
     Active Substance: EPLERENONE
  6. DIGOXIN [Concomitant]
     Active Substance: DIGOXIN

REACTIONS (2)
  - Platelet count decreased [Not Recovered/Not Resolved]
  - Nausea [Unknown]
